FAERS Safety Report 5068181-7 (Version None)
Quarter: 2006Q3

REPORT INFORMATION
  Report Type: 
  Country: None (occurrence: None)
  Receive Date: 20060731
  Receipt Date: 20060725
  Transmission Date: 20061208
  Serious: Yes (Other)
  Sender: FDA-Public Use
  Company Number: CHPA2006US06012

PATIENT
  Age: 30 Year
  Sex: Male
  Weight: 79.4 kg

DRUGS (1)
  1. NICOTINE [Suspect]
     Indication: SMOKING CESSATION THERAPY
     Dosage: 21 MG, QD, TRANSDERMAL
     Route: 062
     Dates: start: 20060612

REACTIONS (6)
  - ARRHYTHMIA [None]
  - CHEST PAIN [None]
  - DISORIENTATION [None]
  - DISTURBANCE IN ATTENTION [None]
  - HEART RATE ABNORMAL [None]
  - PALPITATIONS [None]
